FAERS Safety Report 20006525 (Version 1)
Quarter: 2021Q4

REPORT INFORMATION
  Report Type: Spontaneous
  Country: US (occurrence: US)
  Receive Date: 20211028
  Receipt Date: 20211028
  Transmission Date: 20220304
  Serious: No
  Sender: FDA-Public Use
  Company Number: None

PATIENT
  Age: 63 Year
  Sex: Female
  Weight: 63 kg

DRUGS (2)
  1. DYSPORT [Suspect]
     Active Substance: ABOBOTULINUMTOXINA
     Indication: Skin wrinkling
     Route: 058
     Dates: start: 20210916, end: 20210916
  2. ZOLPIDEM [Concomitant]
     Active Substance: ZOLPIDEM TARTRATE

REACTIONS (11)
  - Eyelid oedema [None]
  - Vision blurred [None]
  - Diplopia [None]
  - Head discomfort [None]
  - Headache [None]
  - Paraesthesia [None]
  - Neuropathy peripheral [None]
  - Muscular weakness [None]
  - General physical condition abnormal [None]
  - Autoimmune disorder [None]
  - Drug ineffective [None]

NARRATIVE: CASE EVENT DATE: 20210920
